FAERS Safety Report 5236814-8 (Version None)
Quarter: 2007Q1

REPORT INFORMATION
  Report Type: 
  Country: None (occurrence: None)
  Receive Date: 20061208
  Receipt Date: 20050722
  Transmission Date: 20070707
  Serious: Yes (Other)
  Sender: FDA-Public Use
  Company Number: 2005UW10989

PATIENT
  Age: 61 Year
  Sex: Male
  Weight: 87.089 kg

DRUGS (4)
  1. CRESTOR [Suspect]
     Indication: BLOOD TRIGLYCERIDES INCREASED
     Dosage: 10 MG QD PO
     Route: 048
  2. LORATADINE [Concomitant]
  3. SUDAFED 12 HOUR [Concomitant]
  4. BLOOD PRESSURE MEDICINE [Concomitant]

REACTIONS (5)
  - BACK PAIN [None]
  - BURNING SENSATION [None]
  - FATIGUE [None]
  - HEADACHE [None]
  - HYPOAESTHESIA [None]
